FAERS Safety Report 18468865 (Version 3)
Quarter: 2021Q1

REPORT INFORMATION
  Report Type: Spontaneous
  Country: CO (occurrence: CO)
  Receive Date: 20201105
  Receipt Date: 20210305
  Transmission Date: 20210419
  Serious: Yes (Other)
  Sender: FDA-Public Use
  Company Number: CO-AMGEN-COLNI2020174112

PATIENT
  Age: 58 Year
  Sex: Male
  Weight: 54 kg

DRUGS (30)
  1. CALCIUM FOLINATE [Concomitant]
     Active Substance: LEUCOVORIN CALCIUM
     Dosage: 2718 MILLIGRAM
  2. FLUOROURACIL. [Concomitant]
     Active Substance: FLUOROURACIL
     Indication: METASTASES TO LIVER
  3. MVASI [Suspect]
     Active Substance: BEVACIZUMAB-AWWB
     Indication: METASTASES TO LIVER
     Dosage: 202.5 MILLIGRAM
     Route: 042
     Dates: start: 2018
  4. PREGABALIN. [Concomitant]
     Active Substance: PREGABALIN
     Indication: PAIN
     Dosage: 50 MILLIGRAM, QD
     Route: 048
     Dates: start: 20200915
  5. FOSAPREPITANT [Concomitant]
     Active Substance: FOSAPREPITANT
     Indication: METASTASES TO LUNG
  6. ONDANSETRON [Concomitant]
     Active Substance: ONDANSETRON
     Indication: METASTASES TO LIVER
  7. TRAMADOL HYDROCHLORIDE. [Concomitant]
     Active Substance: TRAMADOL HYDROCHLORIDE
     Indication: PAIN
     Dosage: 360 UNK
     Dates: start: 20201014
  8. OXALIPLATIN. [Suspect]
     Active Substance: OXALIPLATIN
     Indication: RECTAL ADENOCARCINOMA
     Dosage: 100 MG: 134.3 MG
     Route: 065
     Dates: start: 2018
  9. OXALIPLATIN. [Suspect]
     Active Substance: OXALIPLATIN
     Indication: METASTASES TO LIVER
  10. CALCIUM FOLINATE [Concomitant]
     Active Substance: LEUCOVORIN CALCIUM
     Dosage: 632 MILLIGRAM
  11. DEXAMETHASONE PHOSPHATE [Concomitant]
     Active Substance: DEXAMETHASONE PHOSPHATE
     Indication: RECTAL ADENOCARCINOMA
     Dosage: 16 MILLIGRAM
     Dates: start: 2018
  12. FLUOROURACIL. [Concomitant]
     Active Substance: FLUOROURACIL
     Indication: RECTAL ADENOCARCINOMA
     Dosage: 632 MILLIGRAM
     Route: 042
     Dates: start: 2018
  13. MVASI [Suspect]
     Active Substance: BEVACIZUMAB-AWWB
     Indication: RECTAL ADENOCARCINOMA
     Dosage: 270 MILLIGRAM
     Route: 042
     Dates: start: 2018
  14. TRAMADOL HYDROCHLORIDE. [Concomitant]
     Active Substance: TRAMADOL HYDROCHLORIDE
     Dosage: 100 MILLIGRAM PER MILLILITRE, Q8H
     Route: 048
     Dates: start: 20201014
  15. DEXAMETHASONE PHOSPHATE [Concomitant]
     Active Substance: DEXAMETHASONE PHOSPHATE
     Indication: METASTASES TO LUNG
  16. MVASI [Suspect]
     Active Substance: BEVACIZUMAB-AWWB
     Indication: METASTASES TO LUNG
  17. CALCIUM FOLINATE [Concomitant]
     Active Substance: LEUCOVORIN CALCIUM
     Indication: METASTASES TO LIVER
     Dosage: 474 MILLIGRAM
  18. CALCIUM FOLINATE [Concomitant]
     Active Substance: LEUCOVORIN CALCIUM
     Indication: METASTASES TO LUNG
     Dosage: 474 MILLIGRAM
  19. FOSAPREPITANT [Concomitant]
     Active Substance: FOSAPREPITANT
     Indication: RECTAL ADENOCARCINOMA
     Dosage: 150 MILLIGRAM
     Dates: start: 2018
  20. ONDANSETRON [Concomitant]
     Active Substance: ONDANSETRON
     Indication: RECTAL ADENOCARCINOMA
     Dosage: 16 MILLIGRAM
     Route: 042
     Dates: start: 2018
  21. OXALIPLATIN. [Suspect]
     Active Substance: OXALIPLATIN
     Indication: METASTASES TO LUNG
  22. CALCIUM FOLINATE [Concomitant]
     Active Substance: LEUCOVORIN CALCIUM
     Indication: RECTAL ADENOCARCINOMA
     Dosage: 10MG/ ML, QD
     Dates: start: 2018
  23. LACTULOSE. [Concomitant]
     Active Substance: LACTULOSE
     Indication: GASTROINTESTINAL MOTILITY DISORDER
     Dosage: 10GR/15ML (66.7%), Q12H
     Route: 048
     Dates: start: 20200915
  24. TRAMADOL HYDROCHLORIDE. [Concomitant]
     Active Substance: TRAMADOL HYDROCHLORIDE
     Indication: PAIN
     Dosage: 100 MILLIGRAM PER MILLILITRE, Q4H
     Route: 048
     Dates: start: 20201014
  25. FOSAPREPITANT [Concomitant]
     Active Substance: FOSAPREPITANT
     Indication: METASTASES TO LIVER
  26. ONDANSETRON [Concomitant]
     Active Substance: ONDANSETRON
     Indication: METASTASES TO LUNG
  27. FLUOROURACIL. [Concomitant]
     Active Substance: FLUOROURACIL
     Indication: METASTASES TO LUNG
  28. ACETAMINOPHEN. [Concomitant]
     Active Substance: ACETAMINOPHEN
     Indication: PAIN
     Dosage: 1000 MILLIGRAM, Q8H
     Route: 048
     Dates: start: 20200915
  29. ACETAMINOPHEN. [Concomitant]
     Active Substance: ACETAMINOPHEN
     Dosage: 500 MILLIGRAM, Q8H
     Route: 048
     Dates: start: 20200915
  30. DEXAMETHASONE PHOSPHATE [Concomitant]
     Active Substance: DEXAMETHASONE PHOSPHATE
     Indication: METASTASES TO LIVER

REACTIONS (9)
  - Neuropathy peripheral [Unknown]
  - Haematochezia [Not Recovered/Not Resolved]
  - Feeling hot [Recovering/Resolving]
  - Pain [Unknown]
  - Thrombocytopenia [Not Recovered/Not Resolved]
  - Headache [Recovered/Resolved]
  - Hiccups [Recovering/Resolving]
  - Anxiety [Not Recovered/Not Resolved]
  - Epistaxis [Recovering/Resolving]

NARRATIVE: CASE EVENT DATE: 20201022
